FAERS Safety Report 6769744-0 (Version None)
Quarter: 2010Q2

REPORT INFORMATION
  Report Type: 
  Country: None (occurrence: None)
  Receive Date: 20100615
  Receipt Date: 20100607
  Transmission Date: 20101027
  Serious: Yes (Life-Threatening, Hospitalization)
  Sender: FDA-Public Use
  Company Number: FR-BRACCO-000384

PATIENT
  Sex: Female

DRUGS (7)
  1. MULTIHANCE [Suspect]
     Indication: NUCLEAR MAGNETIC RESONANCE IMAGING
     Route: 042
     Dates: start: 20100325, end: 20100325
  2. MULTIHANCE [Suspect]
     Indication: MEMORY IMPAIRMENT
     Route: 042
     Dates: start: 20100325, end: 20100325
  3. OROCAL [Concomitant]
  4. SIMVASTATIN [Concomitant]
  5. VASTAREL [Concomitant]
  6. EFFEXOR [Concomitant]
  7. TETRAZEPAM [Concomitant]

REACTIONS (4)
  - ANAPHYLACTIC SHOCK [None]
  - BRADYPNOEA [None]
  - CEREBRAL HYPOPERFUSION [None]
  - RESPIRATORY ARREST [None]
